FAERS Safety Report 9350404 (Version 1)
Quarter: 2013Q2

REPORT INFORMATION
  Report Type: Spontaneous
  Country: US (occurrence: None)
  Receive Date: 20130613
  Receipt Date: 20130613
  Transmission Date: 20140414
  Serious: Yes (Hospitalization)
  Sender: FDA-Public Use
  Company Number: None

PATIENT
  Age: 29 Year
  Sex: Female
  Weight: 77 kg

DRUGS (1)
  1. PERMETHRIN [Suspect]
     Indication: ACARODERMATITIS
     Dosage: 5% ONCE TOP
     Route: 061
     Dates: start: 20130310, end: 20130312

REACTIONS (2)
  - Dermatitis contact [None]
  - Swelling face [None]
